FAERS Safety Report 6961663-X (Version None)
Quarter: 2010Q3

REPORT INFORMATION
  Report Type: 
  Country: None (occurrence: None)
  Receive Date: 20100901
  Receipt Date: 20100823
  Transmission Date: 20110219
  Serious: Yes (Hospitalization)
  Sender: FDA-Public Use
  Company Number: CA-ABBOTT-10P-028-0659907-00

PATIENT
  Sex: Female
  Weight: 63.56 kg

DRUGS (7)
  1. HUMIRA [Suspect]
     Indication: RHEUMATOID ARTHRITIS
     Route: 058
     Dates: start: 20090727
  2. FIORINAL [Suspect]
     Indication: PAIN
     Dosage: 100 TABLETS PER WEEK
  3. FIORINAL [Suspect]
     Indication: MIGRAINE
  4. LEVOTHYROXINE [Concomitant]
     Indication: THYROID DISORDER
     Route: 048
  5. FIORINAL [Concomitant]
     Route: 048
  6. TOPAMAX [Concomitant]
     Indication: PRODUCT USED FOR UNKNOWN INDICATION
     Route: 048
  7. PREVACID [Concomitant]
     Indication: GASTRIC DISORDER
     Route: 048

REACTIONS (12)
  - ABASIA [None]
  - ACCIDENTAL OVERDOSE [None]
  - ARTHROPATHY [None]
  - ASTHENIA [None]
  - BLOOD POTASSIUM DECREASED [None]
  - DIPLOPIA [None]
  - FATIGUE [None]
  - MALAISE [None]
  - MUSCULAR WEAKNESS [None]
  - SOMNOLENCE [None]
  - SPEECH DISORDER DEVELOPMENTAL [None]
  - VISION BLURRED [None]
